FAERS Safety Report 5893162-0 (Version None)
Quarter: 2008Q3

REPORT INFORMATION
  Report Type: 
  Country: None (occurrence: None)
  Receive Date: 20080923
  Receipt Date: 20071128
  Transmission Date: 20090109
  Serious: No
  Sender: FDA-Public Use
  Company Number: US-ASTRAZENECA-2007UW20766

PATIENT
  Age: 43 Year
  Sex: Female
  Weight: 84.1 kg

DRUGS (4)
  1. SEROQUEL [Suspect]
     Dosage: 200 MG/ONE TABLET IN MORNING AND THREE TABLETS IN EVENING
     Route: 048
  2. SEROQUEL [Suspect]
     Route: 048
  3. LUNESTA [Suspect]
     Indication: INSOMNIA
     Route: 048
     Dates: start: 20070601
  4. CELEXA [Concomitant]

REACTIONS (1)
  - NIGHTMARE [None]
